FAERS Safety Report 9051835 (Version 1)
Quarter: 2013Q1

REPORT INFORMATION
  Report Type: Spontaneous
  Country: GB (occurrence: GB)
  Receive Date: 20130207
  Receipt Date: 20130207
  Transmission Date: 20140127
  Serious: Yes (Hospitalization)
  Sender: FDA-Public Use
  Company Number: GB-TEVA-382961ISR

PATIENT
  Age: 73 Year
  Sex: Female
  Weight: 92.25 kg

DRUGS (14)
  1. VINCRISTINE [Suspect]
     Indication: B-CELL LYMPHOMA
     Route: 065
  2. PREDNISOLONE [Suspect]
     Indication: B-CELL LYMPHOMA
     Route: 065
  3. RITUXIMAB [Suspect]
     Indication: B-CELL LYMPHOMA
     Route: 042
     Dates: start: 20121129
  4. CYCLOPHOSPHAMIDE [Suspect]
     Indication: B-CELL LYMPHOMA
     Route: 065
  5. LISINOPRIL [Concomitant]
     Indication: HYPERTENSION
  6. FUROSEMIDE [Concomitant]
     Indication: OEDEMA PERIPHERAL
  7. SIMVASTATIN [Concomitant]
     Indication: HYPERCHOLESTEROLAEMIA
     Dates: start: 20121127
  8. LEVOTHYROXINE SODIUM [Concomitant]
     Indication: HYPOTHYROIDISM
  9. METFORMIN HYDROCHLORIDE [Concomitant]
     Indication: DIABETES MELLITUS
  10. NOVOMIX [Concomitant]
     Indication: DIABETES MELLITUS
  11. DOSULEPIN HYDROCHLORIDE [Concomitant]
     Indication: DEPRESSION
     Route: 065
  12. GABAPENTIN [Concomitant]
     Indication: AUTONOMIC NEUROPATHY
     Dates: start: 201208
  13. CAPSAICIN [Concomitant]
     Indication: NEUROPATHY PERIPHERAL
     Dates: start: 2007
  14. ASPIRIN [Concomitant]
     Indication: PERIPHERAL VASCULAR DISORDER

REACTIONS (1)
  - Lower respiratory tract infection [Recovered/Resolved]
